FAERS Safety Report 9154307 (Version 1)
Quarter: 2013Q1

REPORT INFORMATION
  Report Type: Spontaneous
  Country: GB (occurrence: None)
  Receive Date: 20130207
  Receipt Date: 20130207
  Transmission Date: 20140127
  Serious: Yes (Death, Hospitalization)
  Sender: FDA-Public Use
  Company Number: 1588456

PATIENT
  Age: 50 Year
  Sex: Female

DRUGS (4)
  1. FLUDARABINE PHOSPHATE [Suspect]
     Dosage: NOT REPORTED, UNKNOWN, UNKNOWN
  2. METHOTREXATE [Suspect]
     Dosage: NOT REPORTED , UNKNOWN, UNKNOWN
  3. CYCLOPHOSPHAMIDE [Suspect]
     Dosage: NOT REPORTED , UNKNOWN, UNKNOWN
  4. PREDNISOLONE [Concomitant]

REACTIONS (5)
  - Neutropenic sepsis [None]
  - Drug interaction [None]
  - Large granular lymphocytosis [None]
  - Malignant neoplasm progression [None]
  - Gene mutation [None]
